FAERS Safety Report 9479044 (Version 3)
Quarter: 2013Q3

REPORT INFORMATION
  Report Type: Spontaneous
  Country: US (occurrence: US)
  Receive Date: 20130827
  Receipt Date: 20130828
  Transmission Date: 20140515
  Serious: Yes (Hospitalization, Disabling, Other)
  Sender: FDA-Public Use
  Company Number: US-GLAXOSMITHKLINE-A0860011A

PATIENT
  Age: 58 Year
  Sex: Male
  Weight: 127.3 kg

DRUGS (9)
  1. AVANDIA [Suspect]
     Indication: TYPE 2 DIABETES MELLITUS
     Dosage: 4MG PER DAY
     Route: 048
     Dates: start: 20020501, end: 20051101
  2. UNIVASC [Concomitant]
  3. ALLOPURINOL [Concomitant]
  4. LASIX [Concomitant]
  5. UNSPECIFIED MEDICATION [Concomitant]
  6. ATACAND [Concomitant]
  7. GLUCOPHAGE [Concomitant]
  8. STARLIX [Concomitant]
  9. BAKING SODA [Concomitant]

REACTIONS (14)
  - Cardiac failure [Not Recovered/Not Resolved]
  - Cardiac disorder [Unknown]
  - Malaise [Unknown]
  - Asthenia [Unknown]
  - Asthenia [Unknown]
  - Amnesia [Unknown]
  - Heart rate decreased [Unknown]
  - Cardiac failure congestive [Unknown]
  - Stent placement [Unknown]
  - Cardiac ventriculogram [Unknown]
  - Angiogram [Unknown]
  - Ischaemic cardiomyopathy [Unknown]
  - Myocardial ischaemia [Unknown]
  - Chest pain [Unknown]
